FAERS Safety Report 15659579 (Version 2)
Quarter: 2018Q4

REPORT INFORMATION
  Report Type: Spontaneous
  Country: SE (occurrence: SE)
  Receive Date: 20181127
  Receipt Date: 20181128
  Transmission Date: 20190205
  Serious: Yes (Hospitalization)
  Sender: FDA-Public Use
  Company Number: SE-TEVA-2018-SE-978817

PATIENT
  Age: 78 Year
  Sex: Male

DRUGS (15)
  1. ALENDRONAT VECKOTABLETT [Concomitant]
     Route: 065
  2. ALFUZOSIN [Concomitant]
     Active Substance: ALFUZOSIN
     Route: 065
  3. CANDESARTAN. [Concomitant]
     Active Substance: CANDESARTAN
     Route: 065
  4. PREDNISOLON [Concomitant]
     Active Substance: PREDNISOLONE
     Route: 065
  5. PROPAVAN [Concomitant]
     Active Substance: PROPIOMAZINE
     Route: 065
  6. DULOXETINE. [Suspect]
     Active Substance: DULOXETINE
     Indication: DEPRESSION
     Dosage: 60 MILLIGRAM DAILY;
     Route: 048
     Dates: start: 20180823, end: 20181013
  7. TOLTERODIN [Concomitant]
     Active Substance: TOLTERODINE TARTRATE
     Route: 065
  8. KALCIPOS-D FORTE [Concomitant]
     Active Substance: CALCIUM CARBONATE\CHOLECALCIFEROL
     Route: 065
  9. INNOVAIR [Concomitant]
     Active Substance: BECLOMETHASONE DIPROPIONATE\FORMOTEROL
     Route: 065
  10. ALVEDON FORTE [Concomitant]
     Route: 065
  11. LERGIGAN [Concomitant]
     Route: 065
  12. OXIKODON [Concomitant]
     Route: 065
  13. SOTALOL. [Concomitant]
     Active Substance: SOTALOL
     Route: 065
     Dates: end: 201810
  14. FINASTERID [Concomitant]
     Active Substance: FINASTERIDE
     Route: 065
  15. SILDENAFIL. [Concomitant]
     Active Substance: SILDENAFIL
     Route: 065

REACTIONS (1)
  - Atrial fibrillation [Not Recovered/Not Resolved]

NARRATIVE: CASE EVENT DATE: 20181013
